FAERS Safety Report 8306375-5 (Version None)
Quarter: 2012Q2

REPORT INFORMATION
  Report Type: 
  Country: None (occurrence: None)
  Receive Date: 20120423
  Receipt Date: 20120419
  Transmission Date: 20120825
  Serious: Yes (Hospitalization)
  Sender: FDA-Public Use
  Company Number: DE-MERCK-1204DEU00063

PATIENT
  Age: 31 Year
  Sex: Female

DRUGS (2)
  1. EMTRICITABINE AND TENOFOVIR DISOPROXIL FUMARATE [Concomitant]
     Indication: HIV INFECTION
     Route: 048
  2. ISENTRESS [Suspect]
     Indication: HIV INFECTION
     Route: 048

REACTIONS (2)
  - NON-HODGKIN'S LYMPHOMA [None]
  - AMENORRHOEA [None]
